FAERS Safety Report 9393568 (Version 1)
Quarter: 2013Q3

REPORT INFORMATION
  Report Type: Spontaneous
  Country: US (occurrence: US)
  Receive Date: 20130710
  Receipt Date: 20130710
  Transmission Date: 20140515
  Serious: Yes (Death, Hospitalization)
  Sender: FDA-Public Use
  Company Number: US-GLAXOSMITHKLINE-A0886893A

PATIENT
  Sex: Male

DRUGS (8)
  1. AVANDIA [Suspect]
     Indication: DIABETES MELLITUS
     Route: 048
     Dates: start: 20061122, end: 20070307
  2. SIMVASTATIN [Concomitant]
  3. INSULIN [Concomitant]
  4. GLYBURIDE [Concomitant]
  5. GEMFIBROZIL [Concomitant]
  6. CLOPIDOGREL BISULFATE [Concomitant]
  7. CARVEDILOL [Concomitant]
  8. ALBUTEROL [Concomitant]

REACTIONS (3)
  - Myocardial infarction [Fatal]
  - Fluid retention [Unknown]
  - Cardiac failure [Unknown]
